FAERS Safety Report 8571779-2 (Version None)
Quarter: 2012Q3

REPORT INFORMATION
  Report Type: 
  Country: None (occurrence: None)
  Receive Date: 20120806
  Receipt Date: 20120724
  Transmission Date: 20120928
  Serious: Yes (Other)
  Sender: FDA-Public Use
  Company Number: GB-JNJFOC-20120800844

PATIENT
  Sex: Female

DRUGS (4)
  1. ZOPICLONE [Concomitant]
     Indication: PRODUCT USED FOR UNKNOWN INDICATION
     Route: 065
  2. TRAMADOL HYDROCHLORIDE [Suspect]
     Indication: PRODUCT USED FOR UNKNOWN INDICATION
     Route: 065
  3. RISPERIDONE [Concomitant]
     Indication: PRODUCT USED FOR UNKNOWN INDICATION
     Route: 065
  4. PAROXETINE HCL [Suspect]
     Indication: DEPRESSION
     Route: 048
     Dates: start: 20010601, end: 20060901

REACTIONS (18)
  - INAPPROPRIATE AFFECT [None]
  - INTENTIONAL OVERDOSE [None]
  - ANGER [None]
  - PSYCHOMOTOR HYPERACTIVITY [None]
  - PREMATURE MENOPAUSE [None]
  - VICTIM OF ABUSE [None]
  - BRAIN INJURY [None]
  - MANIA [None]
  - DRUG INEFFECTIVE [None]
  - NERVOUS SYSTEM DISORDER [None]
  - MOOD ALTERED [None]
  - JUDGEMENT IMPAIRED [None]
  - MENTAL IMPAIRMENT [None]
  - DRUG DEPENDENCE [None]
  - DEPRESSIVE SYMPTOM [None]
  - ABNORMAL BEHAVIOUR [None]
  - TENSION [None]
  - FEELING ABNORMAL [None]
